FAERS Safety Report 9215061 (Version 1)
Quarter: 2013Q2

REPORT INFORMATION
  Report Type: Report from Study
  Country: JP (occurrence: JP)
  Receive Date: 20130405
  Receipt Date: 20130405
  Transmission Date: 20140414
  Serious: Yes (Life-Threatening, Other)
  Sender: FDA-Public Use
  Company Number: JP-GILEAD-2006-0009338

PATIENT
  Age: 51 Year
  Sex: Male

DRUGS (26)
  1. ADEFOVIR DIPIVOXIL [Suspect]
     Indication: CHRONIC HEPATITIS B
     Route: 048
     Dates: start: 20031118
  2. ZEFIX 100 [Suspect]
     Indication: HEPATIC CIRRHOSIS
     Dosage: 100 MG, UNK
     Route: 048
     Dates: start: 200202
  3. PROGRAF [Concomitant]
     Route: 048
  4. BUFFERIN [Concomitant]
     Route: 048
  5. URSO [Concomitant]
     Route: 048
  6. GLAKAY [Concomitant]
     Route: 048
  7. TAKEPRON [Concomitant]
     Route: 048
  8. MUCOSTA [Concomitant]
     Route: 048
  9. GASMOTIN [Concomitant]
     Route: 048
  10. PYRINAZIN [Concomitant]
     Route: 048
  11. SEROTONE [Concomitant]
     Route: 042
  12. ISOVORIN [Concomitant]
     Route: 042
  13. 5-FU [Concomitant]
     Route: 042
  14. PRIMPERAN [Concomitant]
  15. SOLU-CORTEF [Concomitant]
  16. CHLOR-TRIMETON [Concomitant]
  17. ELPLAT [Concomitant]
     Route: 042
  18. MEROPEN [Concomitant]
     Route: 042
  19. VITAJECT [Concomitant]
     Route: 042
  20. KENALOG [Concomitant]
  21. VOLTAREN [Concomitant]
     Route: 048
  22. TRANSAMIN [Concomitant]
     Route: 048
  23. ALLOID G [Concomitant]
     Route: 048
  24. GASTER D [Concomitant]
     Route: 048
  25. RHYTHMY [Concomitant]
     Route: 048
  26. HEPATITIS B IMMUNOGLOBULIN [Concomitant]
     Route: 042

REACTIONS (6)
  - Jaundice [Recovered/Resolved]
  - Pathogen resistance [Unknown]
  - Blood bilirubin increased [Unknown]
  - Metastases to abdominal cavity [Recovering/Resolving]
  - Metastases to lymph nodes [Recovering/Resolving]
  - Metastases to abdominal cavity [Recovering/Resolving]
